FAERS Safety Report 5207765-X (Version None)
Quarter: 2006Q4

REPORT INFORMATION
  Report Type: 
  Country: None (occurrence: None)
  Receive Date: 20061030
  Receipt Date: 20060714
  Transmission Date: 20070319
  Serious: No
  Sender: FDA-Public Use
  Company Number: 254924

PATIENT
  Age: 65 Year
  Sex: Female
  Weight: 80.3 kg

DRUGS (8)
  1. LEVEMIR [Suspect]
     Indication: INSULIN-REQUIRING TYPE II DIABETES MELLITUS
     Dosage: 6 IU, QD, SUBCUTANEOUS
     Route: 058
     Dates: start: 20060713
  2. GLYCET (MIGLITOL) [Concomitant]
  3. AVANDIA [Concomitant]
  4. GLYBURIDE [Concomitant]
  5. VYTORIN (SIMVASTATIN, EZETIMIBE) [Concomitant]
  6. TOPROL-XL [Concomitant]
  7. FLONASE [Concomitant]
  8. MULTIVITAMINS (THIAMINE HYDROCHLORIDE, RIBOFLAVIN, RETINOL, PANTHENOL, [Concomitant]

REACTIONS (1)
  - HEART RATE INCREASED [None]
